FAERS Safety Report 7632906-4 (Version None)
Quarter: 2011Q3

REPORT INFORMATION
  Report Type: 
  Country: None (occurrence: None)
  Receive Date: 20110725
  Receipt Date: 20110713
  Transmission Date: 20111222
  Serious: Yes (Other)
  Sender: FDA-Public Use
  Company Number: US-ROCHE-751982

PATIENT
  Sex: Male
  Weight: 111.1 kg

DRUGS (2)
  1. ACCUTANE [Suspect]
     Route: 065
     Dates: start: 19870901, end: 19881231
  2. ASPIRIN [Concomitant]
     Indication: HEADACHE
     Dosage: FREQUENCY:AS NEEDED

REACTIONS (8)
  - DEPRESSION [None]
  - SUICIDAL IDEATION [None]
  - BLOOD TRIGLYCERIDES INCREASED [None]
  - INFLAMMATORY BOWEL DISEASE [None]
  - INTESTINAL OBSTRUCTION [None]
  - IRRITABLE BOWEL SYNDROME [None]
  - CROHN'S DISEASE [None]
  - GASTROINTESTINAL INJURY [None]
